FAERS Safety Report 4839907-X (Version None)
Quarter: 2005Q4

REPORT INFORMATION
  Report Type: 
  Country: None (occurrence: None)
  Receive Date: 20051129
  Receipt Date: 20051117
  Transmission Date: 20060501
  Serious: Yes (Other)
  Sender: FDA-Public Use
  Company Number: US-ROCHE-425612

PATIENT
  Age: 38 Year
  Sex: Female
  Weight: 52.6 kg

DRUGS (4)
  1. ACCUTANE [Suspect]
     Indication: ACNE
     Route: 048
     Dates: start: 19980615, end: 20020615
  2. SYNTHROID [Concomitant]
     Indication: HYPOTHYROIDISM
     Route: 048
  3. SINGULAIR [Concomitant]
     Indication: ASTHMA
     Route: 048
  4. ALBUTEROL [Concomitant]
     Indication: ASTHMA
     Dosage: TAKEN WHEN NEEDED.
     Route: 055

REACTIONS (16)
  - ARRHYTHMIA [None]
  - ARTHRALGIA [None]
  - BACK PAIN [None]
  - HEADACHE [None]
  - HIP SWELLING [None]
  - INFLAMMATION [None]
  - JOINT INJURY [None]
  - JOINT SWELLING [None]
  - LIGAMENT RUPTURE [None]
  - MENISCUS LESION [None]
  - NAUSEA [None]
  - NECK PAIN [None]
  - NECROSIS [None]
  - ROAD TRAFFIC ACCIDENT [None]
  - SINUSITIS [None]
  - UTERINE LEIOMYOMA [None]
